FAERS Safety Report 4901287-9 (Version None)
Quarter: 2006Q1

REPORT INFORMATION
  Report Type: 
  Country: None (occurrence: None)
  Receive Date: 20060206
  Receipt Date: 20051121
  Transmission Date: 20060701
  Serious: Yes (Other)
  Sender: FDA-Public Use
  Company Number: GB-NOVOPROD-248797

PATIENT
  Sex: Male

DRUGS (2)
  1. ACTRAPID [Suspect]
     Indication: DIABETES MELLITUS
     Dates: end: 20050301
  2. INSULATARD NPH HUMAN [Concomitant]
     Indication: DIABETES MELLITUS

REACTIONS (4)
  - BLOOD GLUCOSE FLUCTUATION [None]
  - HYPOGLYCAEMIA [None]
  - TONGUE BITING [None]
  - TONGUE HAEMORRHAGE [None]
